FAERS Safety Report 5231214-9 (Version None)
Quarter: 2007Q1

REPORT INFORMATION
  Report Type: 
  Country: None (occurrence: None)
  Receive Date: 20070205
  Receipt Date: 20070205
  Transmission Date: 20070707
  Serious: Yes (Other)
  Sender: FDA-Public Use
  Company Number: None

PATIENT
  Sex: Male
  Weight: 97.7 kg

DRUGS (2)
  1. OXACILLIN [Suspect]
     Indication: INTRASPINAL ABSCESS
     Dosage: 2 G Q 4 HRS IV
     Route: 042
     Dates: start: 20061011, end: 20061106
  2. OXACILLIN [Suspect]

REACTIONS (1)
  - LIVER FUNCTION TEST ABNORMAL [None]
